FAERS Safety Report 24593727 (Version 3)
Quarter: 2024Q4

REPORT INFORMATION
  Report Type: Spontaneous
  Country: FR (occurrence: FR)
  Receive Date: 20241108
  Receipt Date: 20241128
  Transmission Date: 20250115
  Serious: Yes (Hospitalization)
  Sender: PFIZER
  Company Number: FR-STADA-01311152

PATIENT
  Age: 75 Year
  Sex: Male
  Weight: 87.8 kg

DRUGS (16)
  1. DOXORUBICIN HYDROCHLORIDE [Suspect]
     Active Substance: DOXORUBICIN HYDROCHLORIDE
     Indication: Richter^s syndrome
     Dosage: 50 MG/M2, C1D1, R-CHOP ON 3-WEEK CYCLE (21 DAYS) (DAY 1)
     Route: 042
     Dates: start: 20241001, end: 20241001
  2. VINCRISTINE SULFATE [Suspect]
     Active Substance: VINCRISTINE SULFATE
     Indication: Richter^s syndrome
     Dosage: 1.4 MG/M2 (RECOMMENDED CAP OF 2 MG), C1D1, RCHOP ON 3-WEEK CYCLE (21 DAYS) (DAY 1)
     Route: 042
     Dates: start: 20241001, end: 20241001
  3. RITUXIMAB [Suspect]
     Active Substance: RITUXIMAB
     Indication: Richter^s syndrome
     Dosage: 375 MG/M2, C1D1, R-CHOP ON 3-WEEK CYCLE (21DAYS) (DAY 1)
     Route: 042
     Dates: start: 20241001, end: 20241001
  4. PREDNISONE [Suspect]
     Active Substance: PREDNISONE
     Indication: Richter^s syndrome
     Dosage: 100 MG, 1X/DAY R-CHOP THERAPY/D1-D5
     Route: 042
     Dates: start: 20241001
  5. PREDNISONE [Suspect]
     Active Substance: PREDNISONE
     Dosage: 100 MG/DAY, C1D1, D1-D5, R-CHOP ON 3-WEEK
     Route: 048
     Dates: start: 20241001
  6. CYCLOPHOSPHAMIDE [Suspect]
     Active Substance: CYCLOPHOSPHAMIDE
     Indication: Richter^s syndrome
     Dosage: 750 MG/M2, C1D1, R-CHOP ON 3-WEEK CYCLE (21
     Route: 042
     Dates: start: 20241001, end: 20241001
  7. EPCORITAMAB [Suspect]
     Active Substance: EPCORITAMAB
     Indication: Richter^s syndrome
     Dosage: 0.16 MG PRIMING DOSE ON C1D1 (DUOBODY-CD3XCD20)
     Route: 058
     Dates: start: 20241001, end: 20241001
  8. EPCORITAMAB [Suspect]
     Active Substance: EPCORITAMAB
     Dosage: 0.8 MG INTERMEDIATE DOSE ON C1D8 (DUOBODY-CD3XCD20)
     Route: 058
     Dates: start: 20241008, end: 20241008
  9. ACETAMINOPHEN [Concomitant]
     Active Substance: ACETAMINOPHEN
     Indication: Premedication
     Dosage: 1 G, START TIME: AT 10:25 HRS
     Dates: start: 20241001, end: 20241001
  10. ACETAMINOPHEN [Concomitant]
     Active Substance: ACETAMINOPHEN
     Dosage: 1 G, START TIME: AT 16:40 HRS
     Dates: start: 20241001, end: 20241001
  11. ACETAMINOPHEN [Concomitant]
     Active Substance: ACETAMINOPHEN
     Dosage: UNK
     Dates: start: 20241016, end: 20241107
  12. POLARAMINE [Concomitant]
     Active Substance: DEXCHLORPHENIRAMINE MALEATE
     Indication: Premedication
     Dosage: 5 MG
     Dates: start: 20241001, end: 20241001
  13. POLARAMINE [Concomitant]
     Active Substance: DEXCHLORPHENIRAMINE MALEATE
     Dosage: UNK
     Dates: start: 20241016, end: 20241016
  14. FOSFOMYCIN [Concomitant]
     Active Substance: FOSFOMYCIN
     Dosage: UNK
     Dates: start: 20241017, end: 20241017
  15. SMECTA [Concomitant]
     Active Substance: MONTMORILLONITE
     Dosage: UNK
     Dates: start: 20241009, end: 20241010
  16. POTASSIUM CHLORIDE [Concomitant]
     Active Substance: POTASSIUM CHLORIDE
     Dosage: UNK
     Dates: start: 20241014, end: 20241016

REACTIONS (2)
  - Cytokine release syndrome [Recovered/Resolved]
  - Pyrexia [Unknown]

NARRATIVE: CASE EVENT DATE: 20241014
